FAERS Safety Report 14365094 (Version 1)
Quarter: 2018Q1

REPORT INFORMATION
  Report Type: Spontaneous
  Country: US (occurrence: US)
  Receive Date: 20180108
  Receipt Date: 20180108
  Transmission Date: 20180509
  Serious: Yes (Other)
  Sender: FDA-Public Use
  Company Number: US-ROCHE-2003441

PATIENT
  Age: 68 Year
  Sex: Female

DRUGS (2)
  1. ALTEPLASE. [Suspect]
     Active Substance: ALTEPLASE
     Dosage: INFUSION ;ONGOING: UNKNOWN
     Route: 042
     Dates: start: 20170307
  2. ALTEPLASE. [Suspect]
     Active Substance: ALTEPLASE
     Indication: CEREBROVASCULAR ACCIDENT
     Dosage: BOLUS ;ONGOING: UNKNOWN
     Route: 040
     Dates: start: 20170307

REACTIONS (1)
  - Angioedema [Recovered/Resolved]
